FAERS Safety Report 25112398 (Version 1)
Quarter: 2025Q1

REPORT INFORMATION
  Report Type: Spontaneous
  Country: US (occurrence: US)
  Receive Date: 20250324
  Receipt Date: 20250324
  Transmission Date: 20250408
  Serious: No
  Sender: UCB
  Company Number: US-UCBSA-2024048164

PATIENT
  Sex: Female

DRUGS (1)
  1. BRIVIACT [Suspect]
     Active Substance: BRIVARACETAM
     Dosage: 25 MILLIGRAM, ONCE DAILY (QD)

REACTIONS (2)
  - Product availability issue [Unknown]
  - Therapy interrupted [Unknown]
